FAERS Safety Report 8364351-0 (Version None)
Quarter: 2012Q2

REPORT INFORMATION
  Report Type: 
  Country: None (occurrence: None)
  Receive Date: 20120516
  Receipt Date: 20120509
  Transmission Date: 20120825
  Serious: Yes (Hospitalization)
  Sender: FDA-Public Use
  Company Number: US-BAYER-2010-004334

PATIENT
  Age: 46 Year
  Sex: Female
  Weight: 88 kg

DRUGS (2)
  1. EQUATE WOMEN+#8217;S DAILY VITAMIN [Concomitant]
  2. YAZ [Suspect]
     Indication: MENSTRUATION IRREGULAR
     Dosage: UNK
     Dates: start: 20080918, end: 20081001

REACTIONS (9)
  - PAIN [None]
  - ANXIETY [None]
  - TENDERNESS [None]
  - ERYTHEMA [None]
  - OEDEMA PERIPHERAL [None]
  - DEEP VEIN THROMBOSIS [None]
  - PAIN IN EXTREMITY [None]
  - MUSCLE SPASMS [None]
  - FEAR [None]
